FAERS Safety Report 7307331-6 (Version None)
Quarter: 2011Q1

REPORT INFORMATION
  Report Type: 
  Country: None (occurrence: None)
  Receive Date: 20110223
  Receipt Date: 20110215
  Transmission Date: 20110831
  Serious: Yes (Other)
  Sender: FDA-Public Use
  Company Number: US-PFIZER INC-2010138936

PATIENT
  Sex: Female
  Weight: 72.56 kg

DRUGS (7)
  1. NEURONTIN [Suspect]
     Indication: FIBROMYALGIA
  2. VITAMIN D [Concomitant]
     Dosage: 50000 UNITS WEEKLY
  3. NEURONTIN [Suspect]
     Indication: PAIN
     Dosage: 300 MG, 3X/DAY
     Route: 048
     Dates: start: 20100422
  4. CETIRIZINE [Concomitant]
     Dosage: 10 MG, DAILY
  5. SEROQUEL [Concomitant]
     Dosage: UNK
  6. CITALOPRAM [Concomitant]
     Dosage: 40 MG
  7. VITAMIN B-12 [Concomitant]
     Dosage: 1000 UG, DAILY

REACTIONS (3)
  - MEDICATION RESIDUE [None]
  - DIABETES MELLITUS INADEQUATE CONTROL [None]
  - PAIN [None]
